FAERS Safety Report 4303606-3 (Version None)
Quarter: 2004Q1

REPORT INFORMATION
  Report Type: 
  Country: None (occurrence: None)
  Receive Date: 20040225
  Receipt Date: 20040220
  Transmission Date: 20041129
  Serious: Yes (Life-Threatening, Hospitalization, Other)
  Sender: FDA-Public Use
  Company Number: PHBS2004CH02476

PATIENT
  Age: 68 Year
  Sex: Female

DRUGS (9)
  1. LUDIOMIL [Suspect]
     Indication: DEPRESSION
     Route: 048
     Dates: end: 20040215
  2. LUDIOMIL [Suspect]
     Route: 048
     Dates: start: 20040216, end: 20040216
  3. CLORAZEPATE DIPOTASSIUM [Suspect]
     Indication: ANXIETY
     Route: 048
     Dates: end: 20040215
  4. CLORAZEPATE DIPOTASSIUM [Suspect]
     Route: 048
     Dates: start: 20040216, end: 20040216
  5. RISPERDAL [Concomitant]
     Dates: end: 20040216
  6. LORAZEPAM [Concomitant]
     Indication: ANXIETY
     Dosage: 2 MG/D
     Dates: end: 20040216
  7. IMOVANE [Concomitant]
     Indication: SLEEP DISORDER
     Dates: end: 20040216
  8. NEXIUM [Concomitant]
     Indication: GASTRITIS
     Dosage: 40 MG/D
     Dates: end: 20040216
  9. DAFALGAN [Concomitant]
     Indication: PAIN
     Dates: end: 20040216

REACTIONS (12)
  - BLOOD CREATININE INCREASED [None]
  - BLOOD PRESSURE SYSTOLIC INCREASED [None]
  - COMA [None]
  - ELECTROCARDIOGRAM QRS COMPLEX PROLONGED [None]
  - ELECTROCARDIOGRAM QT PROLONGED [None]
  - GRAND MAL CONVULSION [None]
  - HYPERKALAEMIA [None]
  - HYPOTENSION [None]
  - METABOLIC ACIDOSIS [None]
  - MYDRIASIS [None]
  - SUICIDE ATTEMPT [None]
  - TOXICOLOGIC TEST ABNORMAL [None]
